FAERS Safety Report 9867702 (Version 1)
Quarter: 2014Q1

REPORT INFORMATION
  Report Type: Spontaneous
  Country: US (occurrence: US)
  Receive Date: 20140204
  Receipt Date: 20140204
  Transmission Date: 20141002
  Serious: No
  Sender: FDA-Public Use
  Company Number: US-BAXTER-2014BAX002620

PATIENT
  Sex: Male

DRUGS (5)
  1. DIANEAL LOW CALCIUM [Suspect]
     Indication: RENAL FAILURE CHRONIC
     Route: 033
     Dates: start: 201204, end: 201401
  2. DIANEAL LOW CALCIUM [Suspect]
     Route: 033
     Dates: start: 20140117
  3. DIANEAL LOW CALCIUM [Suspect]
     Indication: RENAL FAILURE CHRONIC
     Route: 033
     Dates: start: 201204, end: 201401
  4. DIANEAL LOW CALCIUM [Suspect]
     Route: 033
     Dates: start: 20140117
  5. DIANEAL LOW CALCIUM [Suspect]
     Indication: RENAL FAILURE CHRONIC
     Route: 033
     Dates: start: 201204

REACTIONS (2)
  - Local swelling [Recovering/Resolving]
  - Joint swelling [Recovering/Resolving]
